FAERS Safety Report 19749654 (Version 1)
Quarter: 2021Q3

REPORT INFORMATION
  Report Type: Report from Study
  Country: US (occurrence: US)
  Receive Date: 20210826
  Receipt Date: 20210826
  Transmission Date: 20211014
  Serious: Yes (Death, Hospitalization, Other)
  Sender: FDA-Public Use
  Company Number: US-INSMED, INC.-2021-09243-US

PATIENT

DRUGS (1)
  1. ARIKAYCE [Suspect]
     Active Substance: AMIKACIN
     Indication: MYCOBACTERIUM AVIUM COMPLEX INFECTION
     Dosage: UNK
     Route: 055
     Dates: start: 20190219

REACTIONS (3)
  - Chronic obstructive pulmonary disease [Unknown]
  - Aphasia [Unknown]
  - Death [Fatal]

NARRATIVE: CASE EVENT DATE: 2019
